FAERS Safety Report 5601843-9 (Version None)
Quarter: 2008Q1

REPORT INFORMATION
  Report Type: 
  Country: None (occurrence: None)
  Receive Date: 20080124
  Receipt Date: 20080114
  Transmission Date: 20080703
  Serious: Yes (Other)
  Sender: FDA-Public Use
  Company Number: US-PFIZER INC-2007051518

PATIENT
  Age: 79 Year
  Sex: Male

DRUGS (8)
  1. MICRONASE TAB [Suspect]
     Indication: DIABETES MELLITUS
  2. ACTOS [Suspect]
  3. GLIBENCLAMIDE TABLET [Suspect]
     Indication: DIABETES MELLITUS
  4. CORTISONE [Suspect]
     Indication: JOINT INJURY
  5. AGGRENOX [Concomitant]
  6. TRANXENE [Concomitant]
  7. NITROSTAT [Concomitant]
     Indication: CHEST PAIN
  8. TUMS [Concomitant]

REACTIONS (11)
  - ADVERSE DRUG REACTION [None]
  - ARTHRITIS [None]
  - CEREBROVASCULAR ACCIDENT [None]
  - DYSPNOEA [None]
  - EMPHYSEMA [None]
  - ERYTHEMA [None]
  - INTERVERTEBRAL DISC DISORDER [None]
  - JOINT INJURY [None]
  - MUSCLE SPASMS [None]
  - MYOCARDIAL INFARCTION [None]
  - RASH [None]
